FAERS Safety Report 14065382 (Version 2)
Quarter: 2018Q1

REPORT INFORMATION
  Report Type: Spontaneous
  Country: JP (occurrence: JP)
  Receive Date: 20171009
  Receipt Date: 20180206
  Transmission Date: 20180508
  Serious: Yes (Hospitalization)
  Sender: FDA-Public Use
  Company Number: JP-NAPPMUNDI-GBR-2017-0049365

PATIENT

DRUGS (2)
  1. CALONAL [Concomitant]
     Active Substance: ACETAMINOPHEN
  2. NORSPAN [Suspect]
     Active Substance: BUPRENORPHINE
     Indication: PRODUCT USED FOR UNKNOWN INDICATION
     Dosage: 5 MCG, Q1H
     Route: 062

REACTIONS (3)
  - Compression fracture [Unknown]
  - Nausea [Unknown]
  - Vomiting [Unknown]
